FAERS Safety Report 10003900 (Version 1)
Quarter: 2014Q1

REPORT INFORMATION
  Report Type: Spontaneous
  Country: US (occurrence: US)
  Receive Date: 20140312
  Receipt Date: 20140312
  Transmission Date: 20141002
  Serious: Yes (Other)
  Sender: FDA-Public Use
  Company Number: US-TEVA-468093USA

PATIENT
  Sex: Female

DRUGS (1)
  1. CARBIDOPA AND LEVODOPA [Suspect]
     Dosage: 25 MG/100 MG
     Dates: end: 201402

REACTIONS (4)
  - Haemorrhage [Unknown]
  - Red blood cell count decreased [Unknown]
  - Fatigue [Unknown]
  - Adverse event [Unknown]
